FAERS Safety Report 9377040 (Version 1)
Quarter: 2013Q3

REPORT INFORMATION
  Report Type: Spontaneous
  Country: IT (occurrence: IT)
  Receive Date: 20130701
  Receipt Date: 20130701
  Transmission Date: 20140515
  Serious: Yes (Hospitalization, Other)
  Sender: FDA-Public Use
  Company Number: IT-PFIZER INC-2013191013

PATIENT
  Age: 19 Year
  Sex: Female

DRUGS (2)
  1. XANAX [Suspect]
     Dosage: 1MG (4 DF OF 0.25 MG) TOTAL
     Route: 048
     Dates: start: 20130611, end: 20130611
  2. ENTACT [Suspect]
     Indication: PERSONALITY DISORDER
     Dosage: 20 MG, 1X/DAY (1DF)
     Route: 048
     Dates: start: 20130611

REACTIONS (5)
  - Intentional overdose [Recovered/Resolved]
  - Self injurious behaviour [Recovered/Resolved]
  - Depression [Recovered/Resolved]
  - Dysphoria [Recovered/Resolved]
  - Agitation [Recovered/Resolved]
